FAERS Safety Report 8599836-5 (Version None)
Quarter: 2012Q3

REPORT INFORMATION
  Report Type: 
  Country: None (occurrence: None)
  Receive Date: 20120816
  Receipt Date: 20120803
  Transmission Date: 20120928
  Serious: No
  Sender: FDA-Public Use
  Company Number: US-ASTRAZENECA-2012SE55195

PATIENT
  Age: 6 Year
  Sex: Female

DRUGS (1)
  1. SEROQUEL XR [Suspect]
     Indication: MANIA
     Dosage: LESS THAN 150 MG DAILY
     Route: 048

REACTIONS (3)
  - GLYCOSYLATED HAEMOGLOBIN INCREASED [None]
  - INTENTIONAL DRUG MISUSE [None]
  - BLOOD GLUCOSE INCREASED [None]
